FAERS Safety Report 5911230-1 (Version None)
Quarter: 2008Q4

REPORT INFORMATION
  Report Type: 
  Country: None (occurrence: None)
  Receive Date: 20081007
  Receipt Date: 20080923
  Transmission Date: 20090506
  Serious: Yes (Hospitalization)
  Sender: FDA-Public Use
  Company Number: GB-GENENTECH-261211

PATIENT
  Sex: Female
  Weight: 69 kg

DRUGS (3)
  1. BEVACIZUMAB [Suspect]
     Indication: OVARIAN EPITHELIAL CANCER
     Dosage: 475 MG, UNK
     Route: 042
     Dates: start: 20071114
  2. CARBOPLATIN [Suspect]
     Indication: OVARIAN CANCER
     Dosage: 725 MG, UNK
     Route: 042
     Dates: start: 20071114
  3. PACLITAXEL [Suspect]
     Indication: OVARIAN CANCER
     Dosage: 288 MG, UNK
     Route: 042
     Dates: start: 20071114

REACTIONS (2)
  - MYODESOPSIA [None]
  - NEUTROPENIA [None]
